FAERS Safety Report 23558369 (Version 1)
Quarter: 2024Q1

REPORT INFORMATION
  Report Type: Spontaneous
  Country: NO (occurrence: NO)
  Receive Date: 20240223
  Receipt Date: 20240223
  Transmission Date: 20240409
  Serious: Yes (Hospitalization)
  Sender: FDA-Public Use
  Company Number: None

PATIENT
  Age: 52 Year
  Sex: Male

DRUGS (3)
  1. ACLASTA [Suspect]
     Active Substance: ZOLEDRONIC ACID
     Indication: Product used for unknown indication
     Dosage: UNK, INFUSJONSV?SKE, OPPL?SNING, ZOLEDRONSYRE
     Route: 042
     Dates: start: 2022
  2. TIMOLOL MALEATE [Concomitant]
     Active Substance: TIMOLOL MALEATE
     Indication: Product used for unknown indication
     Dosage: UNK, DEPOT?YEDR, OPPL 1 MG/ML,TIMOLOL - ONGOING TREATMENT
     Route: 065
  3. TRUSOPT [Concomitant]
     Active Substance: DORZOLAMIDE HYDROCHLORIDE
     Indication: Product used for unknown indication
     Dosage: UNK, DORZOLAMID - ONGOING TREATMENT
     Route: 065

REACTIONS (8)
  - Feeling of body temperature change [Recovered/Resolved]
  - Palpitations [Recovered/Resolved]
  - Pyrexia [Recovered/Resolved]
  - C-reactive protein increased [Recovered/Resolved]
  - Hyperhidrosis [Unknown]
  - Malaise [Unknown]
  - Chills [Unknown]
  - Chills [Unknown]

NARRATIVE: CASE EVENT DATE: 20220101
